FAERS Safety Report 9033160 (Version 1)
Quarter: 2013Q1

REPORT INFORMATION
  Report Type: Report from Study
  Country: US (occurrence: US)
  Receive Date: 20130128
  Receipt Date: 20130128
  Transmission Date: 20140127
  Serious: Yes (Hospitalization, Other)
  Sender: FDA-Public Use
  Company Number: US-ROCHE-1183171

PATIENT
  Age: 60 None
  Sex: Male
  Weight: 81.72 kg

DRUGS (2)
  1. AVASTIN [Suspect]
     Indication: GLIOBLASTOMA MULTIFORME
     Route: 042
     Dates: start: 201206, end: 201212
  2. TEMODAR [Suspect]
     Indication: GLIOBLASTOMA MULTIFORME
     Route: 048
     Dates: start: 20130108

REACTIONS (6)
  - Fall [Not Recovered/Not Resolved]
  - Paralysis [Not Recovered/Not Resolved]
  - Agitation [Not Recovered/Not Resolved]
  - Abasia [Unknown]
  - Emotional distress [Not Recovered/Not Resolved]
  - Asthenia [Unknown]
